FAERS Safety Report 11029610 (Version 1)
Quarter: 2015Q2

REPORT INFORMATION
  Report Type: Spontaneous
  Country: US (occurrence: None)
  Receive Date: 20150413
  Receipt Date: 20150413
  Transmission Date: 20150821
  Serious: Yes (Life-Threatening)
  Sender: FDA-Public Use
  Company Number: None

PATIENT
  Age: 63 Year
  Sex: Male
  Weight: 86.18 kg

DRUGS (1)
  1. TAMOXIFEN [Suspect]
     Active Substance: TAMOXIFEN
     Indication: PEYRONIE^S DISEASE
     Route: 048
     Dates: start: 20150206, end: 20150212

REACTIONS (6)
  - Genital rash [None]
  - Rash [None]
  - Blister [None]
  - Skin lesion [None]
  - Nausea [None]
  - Sunburn [None]

NARRATIVE: CASE EVENT DATE: 20150203
